FAERS Safety Report 10074274 (Version 1)
Quarter: 2014Q2

REPORT INFORMATION
  Report Type: Spontaneous
  Country: US (occurrence: US)
  Receive Date: 20140411
  Receipt Date: 20140411
  Transmission Date: 20141212
  Serious: No
  Sender: FDA-Public Use
  Company Number: US-SANOFI-AVENTIS-2013SA040698

PATIENT
  Age: 74 Year
  Sex: Male

DRUGS (4)
  1. ALLEGRA-D, 12 HR [Suspect]
     Indication: SNEEZING
     Dosage: TAKEN FROM- COUPLE OF YEARS AGO
     Route: 065
  2. ALLEGRA-D, 12 HR [Suspect]
     Indication: SINUS OPERATION
     Dosage: TAKEN FROM- COUPLE OF YEARS AGO
     Route: 065
  3. ALLEGRA-D, 12 HR [Suspect]
     Indication: RHINORRHOEA
     Dosage: TAKEN FROM- COUPLE OF YEARS AGO
     Route: 065
  4. ALL OTHER THERAPEUTIC PRODUCTS [Concomitant]

REACTIONS (6)
  - Medication residue present [Unknown]
  - Abdominal discomfort [Not Recovered/Not Resolved]
  - Diarrhoea [Not Recovered/Not Resolved]
  - Back pain [Not Recovered/Not Resolved]
  - Muscle spasms [Not Recovered/Not Resolved]
  - Hearing impaired [Not Recovered/Not Resolved]
